FAERS Safety Report 20172122 (Version 1)
Quarter: 2021Q4

REPORT INFORMATION
  Report Type: Spontaneous
  Country: US (occurrence: US)
  Receive Date: 20211210
  Receipt Date: 20211210
  Transmission Date: 20220303
  Serious: No
  Sender: FDA-Public Use
  Company Number: US-NOVOPROD-775082

PATIENT
  Age: 63 Year
  Sex: Female

DRUGS (1)
  1. LEVEMIR [Suspect]
     Active Substance: INSULIN DETEMIR
     Indication: Product used for unknown indication
     Dosage: 55 IU, BID
     Route: 058

REACTIONS (4)
  - COVID-19 [Recovered/Resolved]
  - Feeling abnormal [Unknown]
  - Urticaria [Unknown]
  - Back pain [Unknown]

NARRATIVE: CASE EVENT DATE: 20201107
